FAERS Safety Report 5385410-0 (Version None)
Quarter: 2007Q3

REPORT INFORMATION
  Report Type: 
  Country: None (occurrence: None)
  Receive Date: 20070705
  Receipt Date: 20070705
  Transmission Date: 20080115
  Serious: Yes (Other)
  Sender: FDA-Public Use
  Company Number: None

PATIENT
  Age: 62 Year
  Sex: Male
  Weight: 95.2554 kg

DRUGS (5)
  1. LEVEMIR [Suspect]
     Indication: DIABETES MELLITUS
     Dosage: INJECT UP TO 80 UNITS SUBCUTANEOUSLY DAILY AS DIRECTED
     Route: 058
     Dates: start: 20050101
  2. CRESTOR [Concomitant]
  3. AVAPRO [Concomitant]
  4. HUMALOG MIX [Concomitant]
  5. METFORMIN HCL [Concomitant]

REACTIONS (4)
  - DIARRHOEA [None]
  - GASTROOESOPHAGEAL REFLUX DISEASE [None]
  - MUSCLE SPASMS [None]
  - PHARMACEUTICAL PRODUCT COMPLAINT [None]
